FAERS Safety Report 8849753 (Version 1)
Quarter: 2012Q4

REPORT INFORMATION
  Report Type: 
  Country: US (occurrence: US)
  Receive Date: 20121019
  Receipt Date: 20121019
  Transmission Date: 20130627
  Serious: Yes (Hospitalization)
  Sender: FDA-Public Use
  Company Number: US-ROCHE-1120033

PATIENT
  Sex: Male

DRUGS (1)
  1. NUTROPIN AQ [Suspect]
     Indication: HYPOTHALAMO-PITUITARY DISORDER
     Route: 065

REACTIONS (4)
  - Malaise [Unknown]
  - Pain [Unknown]
  - Pain [Unknown]
  - Stress [Unknown]
